FAERS Safety Report 7239468-4 (Version None)
Quarter: 2011Q1

REPORT INFORMATION
  Report Type: 
  Country: None (occurrence: None)
  Receive Date: 20110121
  Receipt Date: 20110120
  Transmission Date: 20110831
  Serious: Yes (Other)
  Sender: FDA-Public Use
  Company Number: NL-ABBOTT-10P-114-0665936-00

PATIENT
  Sex: Female
  Weight: 83 kg

DRUGS (16)
  1. HUMIRA [Suspect]
     Indication: UVEITIS
     Route: 058
     Dates: start: 20100809
  2. FOLIC ACID [Concomitant]
     Indication: CARDIAC DISORDER
     Route: 048
     Dates: start: 20080101
  3. CALCI CHEW [Concomitant]
     Indication: PROPHYLAXIS
     Route: 048
     Dates: start: 20100801
  4. HUMIRA [Suspect]
     Indication: SARCOIDOSIS
  5. CARBASALATECALCIUM BRUISTABLET [Concomitant]
     Indication: CARDIAC DISORDER
     Route: 048
     Dates: start: 20070101
  6. METFORMIN HCL [Concomitant]
     Indication: DIABETES MELLITUS
     Route: 048
     Dates: start: 20100820
  7. AMLODIPINE [Concomitant]
     Indication: CARDIAC DISORDER
     Route: 048
     Dates: start: 20070101
  8. FORMOTEROL AEROSOL 12 MICROGRAM/DOSES 100 DOSES INHALATION [Concomitant]
     Indication: ASTHMA
     Dates: start: 20050101
  9. MONTELUKAST [Concomitant]
     Indication: CARDIAC DISORDER
     Route: 048
     Dates: start: 20070101
  10. RANITIDINE [Concomitant]
     Indication: PROPHYLAXIS AGAINST GASTROINTESTINAL ULCER
     Route: 048
     Dates: start: 20100101
  11. METHOTREXATE [Concomitant]
     Indication: SARCOIDOSIS
     Dates: start: 20100301
  12. NEBIVOLOL HCL [Concomitant]
     Indication: HEART RATE DECREASED
     Route: 048
     Dates: start: 20070101
  13. TIOTROPIUM INHALATION CAPSULE 18 MICROGRAM [Concomitant]
     Indication: ASTHMA
     Dates: start: 20050101
  14. CICLESONIDE AEROSOL 160 MICRO/DOSE 60 DOSE INHALATION [Concomitant]
     Indication: ASTHMA
     Dates: start: 20050101
  15. PREDNISOLONE [Concomitant]
     Indication: SARCOIDOSIS
     Route: 048
     Dates: start: 20100301
  16. FOSAMAX [Concomitant]
     Indication: OSTEOPOROSIS PROPHYLAXIS
     Route: 048
     Dates: start: 20100801

REACTIONS (4)
  - INFLUENZA LIKE ILLNESS [None]
  - TYPE 2 DIABETES MELLITUS [None]
  - ALOPECIA [None]
  - MYALGIA [None]
